FAERS Safety Report 5714099-3 (Version None)
Quarter: 2008Q2

REPORT INFORMATION
  Report Type: 
  Country: None (occurrence: None)
  Receive Date: 20080423
  Receipt Date: 20080411
  Transmission Date: 20081010
  Serious: Yes (Life-Threatening, Hospitalization)
  Sender: FDA-Public Use
  Company Number: TR-BAYER-200816709GPV

PATIENT
  Age: 37 Year
  Sex: Female

DRUGS (1)
  1. MIRANOVA [Suspect]
     Indication: ORAL CONTRACEPTION
     Route: 048

REACTIONS (3)
  - BLOOD PRESSURE INCREASED [None]
  - CORONARY ARTERY DISSECTION [None]
  - HAEMODYNAMIC INSTABILITY [None]
